FAERS Safety Report 18009208 (Version 1)
Quarter: 2020Q3

REPORT INFORMATION
  Report Type: Spontaneous
  Country: US (occurrence: US)
  Receive Date: 20200710
  Receipt Date: 20200710
  Transmission Date: 20201103
  Serious: Yes (Hospitalization, Other)
  Sender: FDA-Public Use
  Company Number: US-SAOL THERAPEUTICS-2020SAO00105

PATIENT
  Age: 33 Year
  Sex: Female
  Weight: 56.69 kg

DRUGS (4)
  1. LIORESAL [Suspect]
     Active Substance: BACLOFEN
     Indication: MUSCLE SPASTICITY
     Dosage: 52.50 ?G, \DAY
     Route: 037
  2. NUEDEXTA [Concomitant]
     Active Substance: DEXTROMETHORPHAN HYDROBROMIDE\QUINIDINE SULFATE
     Dosage: 1 DOSAGE UNITS, 2X/DAY
  3. LIORESAL [Suspect]
     Active Substance: BACLOFEN
     Indication: PARAPARESIS
  4. CLONAZEPAM. [Concomitant]
     Active Substance: CLONAZEPAM
     Dosage: 1 MG, 2X/DAY

REACTIONS (6)
  - Implant site infection [Unknown]
  - Cerebrospinal fluid leakage [Recovered/Resolved]
  - Seroma [Recovered/Resolved]
  - Staphylococcal infection [Unknown]
  - Wound dehiscence [Recovered/Resolved]
  - Muscle spasticity [Unknown]

NARRATIVE: CASE EVENT DATE: 201912
